FAERS Safety Report 14119495 (Version 1)
Quarter: 2017Q4

REPORT INFORMATION
  Report Type: Report from Study
  Country: US (occurrence: US)
  Receive Date: 20171024
  Receipt Date: 20171024
  Transmission Date: 20180321
  Serious: No
  Sender: FDA-Public Use
  Company Number: US-AMGEN-USASL2017158894

PATIENT
  Sex: Male

DRUGS (1)
  1. ENBREL [Suspect]
     Active Substance: ETANERCEPT
     Indication: ANKYLOSING SPONDYLITIS
     Dosage: 50 MG, QWK
     Route: 065

REACTIONS (7)
  - Feeling abnormal [Unknown]
  - Hypoaesthesia [Unknown]
  - Rash pruritic [Unknown]
  - Nervousness [Unknown]
  - Joint swelling [Unknown]
  - Rash papular [Unknown]
  - Peripheral swelling [Recovered/Resolved]
